FAERS Safety Report 21070820 (Version 1)
Quarter: 2022Q3

REPORT INFORMATION
  Report Type: Spontaneous
  Country: US (occurrence: None)
  Receive Date: 20220712
  Receipt Date: 20220712
  Transmission Date: 20221026
  Serious: Yes (Other)
  Sender: FDA-Public Use
  Company Number: None

PATIENT
  Age: 72 Year
  Sex: Female

DRUGS (1)
  1. BEBTELOVIMAB [Suspect]
     Active Substance: BEBTELOVIMAB
     Indication: COVID-19
     Dosage: FREQUENCY : ONCE;?
     Route: 042
     Dates: start: 20220627, end: 20220627

REACTIONS (5)
  - Hyperhidrosis [None]
  - Unresponsive to stimuli [None]
  - Heart rate decreased [None]
  - Muscle tightness [None]
  - Blood pressure decreased [None]

NARRATIVE: CASE EVENT DATE: 20220627
